FAERS Safety Report 23441463 (Version 1)
Quarter: 2024Q1

REPORT INFORMATION
  Report Type: Spontaneous
  Country: US (occurrence: US)
  Receive Date: 20240125
  Receipt Date: 20240125
  Transmission Date: 20240410
  Serious: Yes (Hospitalization, Other)
  Sender: FDA-Public Use
  Company Number: US-AUROBINDO-AUR-APL-2013-08861

PATIENT
  Age: 50 Year
  Sex: Female

DRUGS (7)
  1. DONEPEZIL HYDROCHLORIDE [Suspect]
     Active Substance: DONEPEZIL HYDROCHLORIDE
     Indication: Cognitive disorder
     Dosage: 5 MG,DAILY,
     Route: 065
  2. DONEPEZIL HYDROCHLORIDE [Suspect]
     Active Substance: DONEPEZIL HYDROCHLORIDE
     Indication: Secondary progressive multiple sclerosis
  3. DALFAMPRIDINE [Suspect]
     Active Substance: DALFAMPRIDINE
     Indication: Secondary progressive multiple sclerosis
     Dosage: 10 MG,TWO TIMES A DAY,
     Route: 065
  4. GLATIRAMER [Concomitant]
     Active Substance: GLATIRAMER
     Indication: Evidence based treatment
     Dosage: UNK UNK,UNK,
     Route: 065
  5. GLATIRAMER [Concomitant]
     Active Substance: GLATIRAMER
     Indication: Secondary progressive multiple sclerosis
  6. BACLOFEN [Concomitant]
     Active Substance: BACLOFEN
     Indication: Muscle spasticity
     Dosage: UNK UNK,UNK,
     Route: 065
  7. LEVAQUIN [Concomitant]
     Active Substance: LEVOFLOXACIN
     Indication: Culture urine positive
     Dosage: UNK UNK,UNK,
     Route: 065

REACTIONS (3)
  - Generalised tonic-clonic seizure [Recovered/Resolved]
  - Cerebral small vessel ischaemic disease [Unknown]
  - Cerebral ventricle dilatation [Unknown]
